FAERS Safety Report 11327292 (Version 1)
Quarter: 2015Q3

REPORT INFORMATION
  Report Type: Report from Study
  Country: SG (occurrence: SG)
  Receive Date: 20150731
  Receipt Date: 20150731
  Transmission Date: 20151125
  Serious: Yes (Hospitalization)
  Sender: FDA-Public Use
  Company Number: SG-SA-2014SA179999

PATIENT
  Age: 69 Year
  Sex: Male

DRUGS (38)
  1. OXALIPLATIN. [Suspect]
     Active Substance: OXALIPLATIN
     Indication: ADENOCARCINOMA GASTRIC
     Route: 042
     Dates: start: 20150311, end: 20150311
  2. PLACEBO [Suspect]
     Active Substance: UNSPECIFIED INGREDIENT
     Indication: ADENOCARCINOMA GASTRIC
     Dosage: DAILY ON D1-7, EVERY 14 DAYS
     Route: 048
     Dates: end: 20141214
  3. FLUOROURACIL. [Suspect]
     Active Substance: FLUOROURACIL
     Indication: ADENOCARCINOMA GASTRIC
     Dosage: CONTINUOUS OVER 46 TO 48H, EVERY 14 DAYS
     Route: 042
     Dates: start: 20141124
  4. FLUOROURACIL. [Suspect]
     Active Substance: FLUOROURACIL
     Indication: ADENOCARCINOMA GASTRIC
     Dosage: IV DRIP
     Route: 041
     Dates: start: 20141231
  5. LEUCOVORIN. [Suspect]
     Active Substance: LEUCOVORIN
     Indication: ADENOCARCINOMA GASTRIC
     Route: 042
     Dates: end: 20150615
  6. LEUCOVORIN. [Suspect]
     Active Substance: LEUCOVORIN
     Indication: ADENOCARCINOMA GASTRIC
     Dosage: OVER 2 HOURS ON D1 EVERY 14 DAYS
     Route: 042
     Dates: start: 20141124
  7. ANAREX [Concomitant]
     Active Substance: ACETAMINOPHEN\ORPHENADRINE CITRATE
     Indication: PAIN
     Route: 048
     Dates: start: 20140530, end: 20141126
  8. METOCLOPRAMIDE. [Concomitant]
     Active Substance: METOCLOPRAMIDE
     Indication: PROPHYLAXIS
     Route: 048
     Dates: start: 20141124, end: 20150314
  9. FLUOROURACIL. [Suspect]
     Active Substance: FLUOROURACIL
     Indication: ADENOCARCINOMA GASTRIC
     Route: 040
     Dates: start: 20150615, end: 20150615
  10. HYDROXYZINE HYDROCHLORIDE. [Concomitant]
     Active Substance: HYDROXYZINE HYDROCHLORIDE
     Indication: INSOMNIA
     Route: 048
     Dates: start: 20141128
  11. GRANISETRON [Concomitant]
     Active Substance: GRANISETRON
     Indication: PROPHYLAXIS
     Route: 042
     Dates: start: 20141124, end: 20150311
  12. DEXTROMETHORPHAN HYDROBROMIDE. [Concomitant]
     Active Substance: DEXTROMETHORPHAN HYDROBROMIDE
     Indication: COUGH
     Dates: start: 20150617
  13. OMEPRAZOLE. [Concomitant]
     Active Substance: OMEPRAZOLE
     Indication: PROPHYLAXIS
     Route: 048
     Dates: start: 20141127
  14. SIMETICONE/MAGNESIUM HYDROXIDE/ALUMINIUM HYDROXIDE GEL, DRIED [Concomitant]
     Indication: DYSPEPSIA
     Route: 048
     Dates: start: 20141126, end: 20141126
  15. GRANISETRON [Concomitant]
     Active Substance: GRANISETRON
     Indication: PROPHYLAXIS
     Route: 048
     Dates: start: 20141124, end: 20150314
  16. DOMPERIDONE [Concomitant]
     Active Substance: DOMPERIDONE
     Indication: ABDOMINAL DISTENSION
     Dates: start: 20150612
  17. PLACEBO [Suspect]
     Active Substance: UNSPECIFIED INGREDIENT
     Indication: ADENOCARCINOMA GASTRIC
     Dosage: DAILY ON D1-7, EVERY 14 DAYS
     Route: 048
     Dates: start: 20141124
  18. FLUOROURACIL. [Suspect]
     Active Substance: FLUOROURACIL
     Indication: ADENOCARCINOMA GASTRIC
     Route: 040
     Dates: end: 20141208
  19. SIMETICONE/MAGNESIUM HYDROXIDE/ALUMINIUM HYDROXIDE GEL, DRIED [Concomitant]
     Indication: DYSPEPSIA
     Route: 048
     Dates: start: 20141126, end: 20141126
  20. CELECOXIB. [Concomitant]
     Active Substance: CELECOXIB
     Indication: PAIN
     Route: 048
     Dates: start: 20141126, end: 20141202
  21. DEXAMETHASONE. [Concomitant]
     Active Substance: DEXAMETHASONE
     Indication: PROPHYLAXIS
     Route: 042
     Dates: start: 20141124, end: 20150311
  22. ASPIRIN. [Concomitant]
     Active Substance: ASPIRIN
     Indication: CARDIOVASCULAR EVENT PROPHYLAXIS
     Dates: start: 20141229
  23. TRIDERM [Concomitant]
     Active Substance: TRIAMCINOLONE ACETONIDE
     Indication: PRURITUS
     Dates: start: 20150602, end: 20150604
  24. CIPROFLOXACIN. [Concomitant]
     Active Substance: CIPROFLOXACIN
     Indication: PYREXIA
     Dates: start: 20150617, end: 20150621
  25. OXALIPLATIN. [Suspect]
     Active Substance: OXALIPLATIN
     Indication: ADENOCARCINOMA GASTRIC
     Dosage: OVER 2 HOURS ON D1 EVERY 14 DAYS
     Route: 042
     Dates: end: 20141208
  26. PLACEBO [Suspect]
     Active Substance: UNSPECIFIED INGREDIENT
     Indication: ADENOCARCINOMA GASTRIC
     Route: 048
     Dates: start: 20141231
  27. ENALAPRIL MALEATE. [Concomitant]
     Active Substance: ENALAPRIL MALEATE
     Indication: HYPERTENSION
     Route: 048
     Dates: start: 2005
  28. LOVASTATIN. [Concomitant]
     Active Substance: LOVASTATIN
     Indication: HYPERLIPIDAEMIA
     Route: 048
     Dates: start: 2005
  29. LOPERAMIDE HYDROCHLORIDE. [Concomitant]
     Active Substance: LOPERAMIDE HYDROCHLORIDE
     Indication: DIARRHOEA
     Dosage: FORM: CAPSULE/ TABLET
     Route: 048
     Dates: start: 20141208
  30. FLUOROURACIL. [Suspect]
     Active Substance: FLUOROURACIL
     Indication: ADENOCARCINOMA GASTRIC
     Dosage: IV DRIP
     Route: 041
     Dates: start: 20150615, end: 20150615
  31. FLUOROURACIL. [Suspect]
     Active Substance: FLUOROURACIL
     Indication: ADENOCARCINOMA GASTRIC
     Route: 040
     Dates: start: 20141124
  32. FLUOROURACIL. [Suspect]
     Active Substance: FLUOROURACIL
     Indication: ADENOCARCINOMA GASTRIC
     Route: 042
     Dates: end: 20141210
  33. OXALIPLATIN. [Suspect]
     Active Substance: OXALIPLATIN
     Indication: ADENOCARCINOMA GASTRIC
     Dosage: OVER 2 HOURS ON D1 EVERY 14 DAYS
     Route: 042
     Dates: start: 20141124
  34. PLACEBO [Suspect]
     Active Substance: UNSPECIFIED INGREDIENT
     Indication: ADENOCARCINOMA GASTRIC
     Dosage: DAILY ON D1-7,EVERY 14 DAYS
     Route: 048
     Dates: end: 20150621
  35. ALFUZOSIN HYDROCHLORIDE. [Concomitant]
     Active Substance: ALFUZOSIN HYDROCHLORIDE
     Indication: BENIGN PROSTATIC HYPERPLASIA
     Dosage: 07 DAYS; 05 DAYS.
     Route: 048
     Dates: start: 20140822, end: 20150109
  36. TRAMADOL. [Concomitant]
     Active Substance: TRAMADOL
     Indication: PAIN
     Dosage: FORM: CAPSULE/ TABLET
     Route: 048
     Dates: start: 20141107, end: 20141130
  37. DEXAMETHASONE. [Concomitant]
     Active Substance: DEXAMETHASONE
     Indication: PROPHYLAXIS
     Route: 048
     Dates: start: 20141124, end: 20150314
  38. UREA. [Concomitant]
     Active Substance: UREA
     Indication: DRY SKIN

REACTIONS (2)
  - Infection [Not Recovered/Not Resolved]
  - Infection [Recovered/Resolved]

NARRATIVE: CASE EVENT DATE: 20141219
